FAERS Safety Report 10875179 (Version 2)
Quarter: 2015Q2

REPORT INFORMATION
  Report Type: Spontaneous
  Country: IT (occurrence: IT)
  Receive Date: 20150227
  Receipt Date: 20150528
  Transmission Date: 20150821
  Serious: Yes (Life-Threatening)
  Sender: FDA-Public Use
  Company Number: IT-ASTRAZENECA-2015SE18399

PATIENT
  Age: 27902 Day
  Sex: Male

DRUGS (2)
  1. SEROQUEL [Suspect]
     Active Substance: QUETIAPINE FUMARATE
     Indication: DEPRESSION
     Route: 048
     Dates: start: 20140829, end: 20140829
  2. LORAZEPAM. [Suspect]
     Active Substance: LORAZEPAM
     Indication: DEPRESSION
     Route: 048
     Dates: start: 20140829

REACTIONS (5)
  - Coma [Unknown]
  - Drug abuse [Unknown]
  - Multiple system atrophy [Unknown]
  - Haematemesis [Unknown]
  - Off label use [Unknown]

NARRATIVE: CASE EVENT DATE: 20140829
